FAERS Safety Report 5596617-1 (Version None)
Quarter: 2007Q4

REPORT INFORMATION
  Report Type: 
  Country: None (occurrence: None)
  Receive Date: 20071219
  Receipt Date: 20071004
  Transmission Date: 20080405
  Serious: Yes (Other)
  Sender: FDA-Public Use
  Company Number: US-WYE-H00523007

PATIENT

DRUGS (1)
  1. TORISEL [Suspect]
     Dosage: ^ONE DOSE^, INTRAVENOUS
     Route: 042
     Dates: start: 20070101

REACTIONS (1)
  - RENAL FAILURE ACUTE [None]
